FAERS Safety Report 20890755 (Version 1)
Quarter: 2022Q2

REPORT INFORMATION
  Report Type: Spontaneous
  Country: GB (occurrence: GB)
  Receive Date: 20220530
  Receipt Date: 20220530
  Transmission Date: 20220721
  Serious: Yes (Life-Threatening, Other)
  Sender: FDA-Public Use
  Company Number: None

PATIENT

DRUGS (1)
  1. ARIPIPRAZOLE [Suspect]
     Active Substance: ARIPIPRAZOLE
     Indication: Schizophrenia
     Dosage: UNKNOWN

REACTIONS (22)
  - Toxicity to various agents [Not Recovered/Not Resolved]
  - Nerve injury [Unknown]
  - Sensory disturbance [Unknown]
  - Incontinence [Unknown]
  - Anxiety [Unknown]
  - Nervousness [Unknown]
  - Aggression [Unknown]
  - Suicidal ideation [Unknown]
  - Asthenia [Unknown]
  - Fatigue [Unknown]
  - Disturbance in attention [Unknown]
  - Tremor [Unknown]
  - Gait disturbance [Unknown]
  - Restlessness [Unknown]
  - Insomnia [Unknown]
  - Feeling abnormal [Unknown]
  - Malaise [Unknown]
  - Illness [Unknown]
  - Diabetes mellitus [Unknown]
  - Parkinson^s disease [Unknown]
  - Near death experience [Unknown]
  - Mental impairment [Unknown]

NARRATIVE: CASE EVENT DATE: 20220512
